FAERS Safety Report 7765192-5 (Version None)
Quarter: 2011Q3

REPORT INFORMATION
  Report Type: 
  Country: None (occurrence: None)
  Receive Date: 20110921
  Receipt Date: 20110916
  Transmission Date: 20111222
  Serious: Yes (Hospitalization)
  Sender: FDA-Public Use
  Company Number: US-GLAXOSMITHKLINE-A0810195A

PATIENT
  Age: 52 Year
  Sex: Male
  Weight: 79.8 kg

DRUGS (5)
  1. NEXIUM [Concomitant]
  2. INSULIN [Concomitant]
  3. LOPRESSOR [Concomitant]
  4. METFORMIN HCL [Concomitant]
  5. AVANDIA [Suspect]
     Indication: TYPE 2 DIABETES MELLITUS
     Dosage: 4MG PER DAY
     Route: 048
     Dates: start: 20051201, end: 20070101

REACTIONS (5)
  - NEUROPATHY PERIPHERAL [None]
  - ISCHAEMIC CARDIOMYOPATHY [None]
  - HYPERLIPIDAEMIA [None]
  - MYOCARDIAL INFARCTION [None]
  - CORONARY ARTERY DISEASE [None]
